FAERS Safety Report 5177580-4 (Version None)
Quarter: 2006Q4

REPORT INFORMATION
  Report Type: 
  Country: None (occurrence: None)
  Receive Date: 20061207
  Receipt Date: 20061201
  Transmission Date: 20070319
  Serious: Yes (Death, Hospitalization)
  Sender: FDA-Public Use
  Company Number: 2006148871

PATIENT
  Age: 61 Year
  Sex: Female

DRUGS (4)
  1. NIFEDIPINE [Suspect]
     Dosage: (60 MG), ORAL
     Route: 048
  2. SERTRALINE [Suspect]
     Dosage: (50 MG), ORAL
     Route: 048
  3. ATORVASTATIN CALCIUM [Suspect]
     Dosage: (10 MG), ORAL
     Route: 048
  4. VENLAFAXINE HCL [Suspect]
     Dosage: (75 MG), ORAL
     Route: 048

REACTIONS (8)
  - BEZOAR [None]
  - BRADYCARDIA [None]
  - HYPOTENSION [None]
  - INTENTIONAL DRUG MISUSE [None]
  - LOSS OF CONSCIOUSNESS [None]
  - MULTI-ORGAN FAILURE [None]
  - RESPIRATORY RATE DECREASED [None]
  - SOMNOLENCE [None]
